FAERS Safety Report 5410322-3 (Version None)
Quarter: 2007Q3

REPORT INFORMATION
  Report Type: 
  Country: None (occurrence: None)
  Receive Date: 20070808
  Receipt Date: 20070725
  Transmission Date: 20080115
  Serious: Yes (Hospitalization, Other)
  Sender: FDA-Public Use
  Company Number: 2007BI001341

PATIENT
  Age: 37 Year
  Sex: Female
  Weight: 113.3993 kg

DRUGS (2)
  1. NATALIZUMAB [Suspect]
     Indication: MULTIPLE SCLEROSIS
     Dosage: 300 MG; QM; IV
     Route: 042
     Dates: start: 20061101
  2. NAPROXEN [Concomitant]

REACTIONS (10)
  - BALANCE DISORDER [None]
  - CARDIAC FAILURE CONGESTIVE [None]
  - INFLUENZA [None]
  - LIPOMA [None]
  - MIGRAINE [None]
  - NEPHROLITHIASIS [None]
  - PAIN IN EXTREMITY [None]
  - PLANTAR FASCIITIS [None]
  - SINUSITIS [None]
  - WEIGHT DECREASED [None]
